FAERS Safety Report 22393688 (Version 1)
Quarter: 2023Q2

REPORT INFORMATION
  Report Type: Spontaneous
  Country: CA (occurrence: CA)
  Receive Date: 20230601
  Receipt Date: 20230601
  Transmission Date: 20230722
  Serious: Yes (Other)
  Sender: FDA-Public Use
  Company Number: CA-PFIZER INC-202201325204

PATIENT
  Age: 70 Year
  Sex: Female

DRUGS (5)
  1. XELJANZ [Suspect]
     Active Substance: TOFACITINIB CITRATE
     Dosage: 5 MG, 2X/DAY
     Route: 048
     Dates: start: 20150801
  2. ARAVA [Concomitant]
     Active Substance: LEFLUNOMIDE
     Dosage: 20 MG, 1X/DAY
     Route: 065
  3. LEFLUNOMIDE [Concomitant]
     Active Substance: LEFLUNOMIDE
     Dosage: 20 MG, 1X/DAY
     Route: 065
  4. ORENCIA [Concomitant]
     Active Substance: ABATACEPT
     Dosage: 1 DF, WEEKLY
  5. PREDNISONE [Concomitant]
     Active Substance: PREDNISONE
     Dosage: 7.5MG, 1X/DAY
     Route: 065

REACTIONS (2)
  - Gait disturbance [Unknown]
  - Treatment failure [Unknown]
